FAERS Safety Report 4639527-6 (Version None)
Quarter: 2005Q2

REPORT INFORMATION
  Report Type: 
  Country: None (occurrence: None)
  Receive Date: 20050419
  Receipt Date: 20050407
  Transmission Date: 20051028
  Serious: Yes (Death)
  Sender: FDA-Public Use
  Company Number: 200502580

PATIENT
  Age: 46 Year
  Sex: Female

DRUGS (2)
  1. BOTOX PURIFIED NEUROTOXIN COMPLEX [Suspect]
     Indication: MUSCLE SPASTICITY
     Dosage: 200 UNITS ONCE IM
     Route: 030
     Dates: start: 20050201, end: 20050201
  2. AVONEX [Concomitant]

REACTIONS (1)
  - DEATH [None]
